FAERS Safety Report 4682055-2 (Version None)
Quarter: 2005Q2

REPORT INFORMATION
  Report Type: 
  Country: None (occurrence: None)
  Receive Date: 20050606
  Receipt Date: 20050317
  Transmission Date: 20051028
  Serious: Yes (Hospitalization)
  Sender: FDA-Public Use
  Company Number: DE-BOEHRINGER INGELHEIM PHARMACEUTICALS, INC.-2005-DE-01105DE

PATIENT
  Age: 61 Year
  Sex: Female

DRUGS (2)
  1. SIFROL [Suspect]
     Indication: PARKINSON'S DISEASE
     Route: 048
  2. ASPIRIN [Concomitant]
     Route: 048

REACTIONS (5)
  - CIRCULATORY COLLAPSE [None]
  - CONFUSIONAL STATE [None]
  - DRUG ABUSER [None]
  - LOSS OF CONSCIOUSNESS [None]
  - SUICIDE ATTEMPT [None]
